FAERS Safety Report 9637137 (Version 1)
Quarter: 2013Q4

REPORT INFORMATION
  Report Type: Spontaneous
  Country: US (occurrence: US)
  Receive Date: 20131022
  Receipt Date: 20131022
  Transmission Date: 20140711
  Serious: No
  Sender: FDA-Public Use
  Company Number: US-TEVA-439167USA

PATIENT
  Age: 47 Year
  Sex: Female
  Weight: 68.1 kg

DRUGS (6)
  1. COPAXONE [Suspect]
     Indication: RELAPSING-REMITTING MULTIPLE SCLEROSIS
     Dates: end: 201310
  2. KLONOPIN [Concomitant]
     Indication: AUTONOMIC NERVOUS SYSTEM IMBALANCE
     Dosage: 3 MILLIGRAM DAILY;
  3. KLONOPIN [Concomitant]
     Indication: INSOMNIA
  4. FLORINEF [Concomitant]
     Indication: HYPOTENSION
     Dosage: .1 MILLIGRAM DAILY;
     Route: 048
  5. NADOLOL [Concomitant]
     Indication: TACHYCARDIA
     Dosage: 20 MILLIGRAM DAILY; 1/2 AM, 1/4 PM
  6. CYMBALTA [Concomitant]
     Indication: FIBROMYALGIA
     Dosage: 60 MILLIGRAM DAILY;
     Route: 048

REACTIONS (5)
  - Drug hypersensitivity [Recovering/Resolving]
  - Rash pruritic [Recovering/Resolving]
  - Injection site mass [Recovering/Resolving]
  - Urticaria [Recovered/Resolved]
  - Injection site urticaria [Recovered/Resolved]
